FAERS Safety Report 18095814 (Version 2)
Quarter: 2020Q3

REPORT INFORMATION
  Report Type: Spontaneous
  Country: FR (occurrence: FR)
  Receive Date: 20200730
  Receipt Date: 20200818
  Transmission Date: 20201103
  Serious: Yes (Life-Threatening, Hospitalization, Other)
  Sender: FDA-Public Use
  Company Number: FR-SAMSUNG BIOEPIS-SB-2020-23339

PATIENT
  Age: 52 Year
  Sex: Male

DRUGS (6)
  1. AMOXICILLIN;CLAVULANIC ACID [Suspect]
     Active Substance: AMOXICILLIN\CLAVULANIC ACID
     Indication: RHEUMATIC DISORDER
     Dosage: UNKNOWN
     Route: 065
  2. AMOXICILLIN;CLAVULANIC ACID [Suspect]
     Active Substance: AMOXICILLIN\CLAVULANIC ACID
     Indication: ODYNOPHAGIA
  3. METHOTREXATE. [Suspect]
     Active Substance: METHOTREXATE
     Indication: RHEUMATIC DISORDER
     Dosage: SINCE 5 DAYS
     Route: 065
  4. INFLIXIMAB [Suspect]
     Active Substance: INFLIXIMAB
     Indication: RHEUMATIC DISORDER
     Dosage: UNKNOWN
     Route: 065
  5. CELECOXIB. [Suspect]
     Active Substance: CELECOXIB
     Indication: RHEUMATIC DISORDER
     Dosage: UNKNOWN?FOR MORE THAN A YEAR
     Route: 065
  6. AMOXICILLIN;CLAVULANIC ACID [Suspect]
     Active Substance: AMOXICILLIN\CLAVULANIC ACID
     Indication: EAR PAIN

REACTIONS (17)
  - Bundle branch block left [Recovered/Resolved]
  - Ventricular dysfunction [Recovered/Resolved]
  - Cardiac disorder [Recovered/Resolved]
  - Epstein-Barr virus infection reactivation [Not Recovered/Not Resolved]
  - Lymphadenopathy [Recovered/Resolved]
  - Anaemia [Unknown]
  - Interstitial lung disease [Recovering/Resolving]
  - Cardiopulmonary failure [Recovered/Resolved]
  - Lymphadenopathy [Unknown]
  - Hepatocellular injury [Recovered/Resolved]
  - Acute generalised exanthematous pustulosis [Recovered/Resolved]
  - Ejection fraction decreased [Recovered/Resolved]
  - Product use in unapproved indication [Unknown]
  - Drug reaction with eosinophilia and systemic symptoms [Recovering/Resolving]
  - Drug eruption [Unknown]
  - C-reactive protein increased [Unknown]
  - Thrombocytopenia [Unknown]
